FAERS Safety Report 5100374-2 (Version None)
Quarter: 2006Q3

REPORT INFORMATION
  Report Type: 
  Country: None (occurrence: None)
  Receive Date: 20060731
  Receipt Date: 20060531
  Transmission Date: 20061208
  Serious: No
  Sender: FDA-Public Use
  Company Number: 2006PV014780

PATIENT
  Age: 59 Year
  Sex: Female
  Weight: 90.7194 kg

DRUGS (8)
  1. BYETTA [Suspect]
     Indication: DIABETES MELLITUS NON-INSULIN-DEPENDENT
     Dosage: 10 MCG; BID; SC, SEE IMAGE
     Route: 058
     Dates: start: 20060101, end: 20060501
  2. BYETTA [Suspect]
     Indication: DIABETES MELLITUS NON-INSULIN-DEPENDENT
     Dosage: 10 MCG; BID; SC, SEE IMAGE
     Route: 058
     Dates: start: 20060501
  3. METFORMIN HCL [Concomitant]
  4. AVATRO [Concomitant]
  5. VERAPAMIL [Concomitant]
  6. AMIODARONE [Concomitant]
  7. LANOXIN [Concomitant]
  8. LEVOXYL [Concomitant]

REACTIONS (4)
  - BLOOD PRESSURE INCREASED [None]
  - EARLY SATIETY [None]
  - NAUSEA [None]
  - PALPITATIONS [None]
